FAERS Safety Report 4641517-4 (Version None)
Quarter: 2005Q2

REPORT INFORMATION
  Report Type: 
  Country: None (occurrence: None)
  Receive Date: 20050421
  Receipt Date: 20040910
  Transmission Date: 20051028
  Serious: Yes (Hospitalization, Disabling)
  Sender: FDA-Public Use
  Company Number: US-ROCHE-380386

PATIENT
  Age: 44 Year
  Sex: Male
  Weight: 45.8 kg

DRUGS (5)
  1. FUZEON [Suspect]
     Indication: HIV INFECTION
     Route: 058
     Dates: start: 20040830
  2. VIDEX [Concomitant]
     Indication: HIV INFECTION
     Route: 048
     Dates: start: 20040830
  3. KALETRA [Concomitant]
     Indication: HIV INFECTION
     Route: 048
     Dates: start: 20040830
  4. VIRAMUNE [Concomitant]
     Indication: HIV INFECTION
     Dosage: 200 MG PER DAY FOR 14 DAYS THEN 200 MG Q12H.
     Route: 048
     Dates: start: 20040830
  5. BACTRIM [Concomitant]
     Dosage: TAKEN MONDAY/WEDNESDAY/FRIDAY.
     Route: 048
     Dates: start: 20040428

REACTIONS (14)
  - BLOOD AMYLASE INCREASED [None]
  - BRAIN NATRIURETIC PEPTIDE ABNORMAL [None]
  - CONDITION AGGRAVATED [None]
  - DIARRHOEA [None]
  - ERYTHEMA [None]
  - GOUT [None]
  - HEPATITIS B [None]
  - INFECTION [None]
  - JOINT SWELLING [None]
  - LIPASE INCREASED [None]
  - OEDEMA PERIPHERAL [None]
  - OSTEOARTHRITIS [None]
  - PAIN [None]
  - RED BLOOD CELL SEDIMENTATION RATE INCREASED [None]
